FAERS Safety Report 6927897-5 (Version None)
Quarter: 2010Q3

REPORT INFORMATION
  Report Type: 
  Country: None (occurrence: None)
  Receive Date: 20100813
  Receipt Date: 20100813
  Transmission Date: 20110219
  Serious: Yes (Other)
  Sender: FDA-Public Use
  Company Number: None

PATIENT
  Sex: Female
  Weight: 67.3 kg

DRUGS (1)
  1. MIRENA STANDARD BAYER [Suspect]
     Indication: CONTRACEPTION
     Dates: start: 20081001, end: 20100601

REACTIONS (16)
  - ABDOMINAL DISTENSION [None]
  - ABDOMINAL PAIN LOWER [None]
  - AMENORRHOEA [None]
  - COMPLICATION OF DEVICE INSERTION [None]
  - DEPRESSION [None]
  - FATIGUE [None]
  - INFECTION [None]
  - LIBIDO DECREASED [None]
  - MIGRAINE [None]
  - MOOD SWINGS [None]
  - MUSCLE SPASMS [None]
  - OPERATIVE HAEMORRHAGE [None]
  - OVARIAN CYST [None]
  - PELVIC INFLAMMATORY DISEASE [None]
  - PROCEDURAL PAIN [None]
  - WEIGHT INCREASED [None]
